FAERS Safety Report 20092598 (Version 1)
Quarter: 2021Q4

REPORT INFORMATION
  Report Type: Spontaneous
  Country: US (occurrence: US)
  Receive Date: 20211119
  Receipt Date: 20211119
  Transmission Date: 20220303
  Serious: Yes (Hospitalization)
  Sender: FDA-Public Use
  Company Number: US-SA-SAC20211116001280

PATIENT
  Sex: Male

DRUGS (1)
  1. AUBAGIO [Suspect]
     Active Substance: TERIFLUNOMIDE
     Indication: Multiple sclerosis
     Dosage: 7 MG, QD TAKE 1 TABLET BY MOUTH DAILY
     Route: 048
     Dates: start: 20180518

REACTIONS (2)
  - Unevaluable event [Unknown]
  - Therapy interrupted [Unknown]
